FAERS Safety Report 14402031 (Version 2)
Quarter: 2018Q1

REPORT INFORMATION
  Report Type: Spontaneous
  Country: US (occurrence: US)
  Receive Date: 20180117
  Receipt Date: 20180129
  Transmission Date: 20180509
  Serious: Yes (Hospitalization)
  Sender: FDA-Public Use
  Company Number: US-VERTEX PHARMACEUTICALS-2018-000301

PATIENT
  Age: 25 Year

DRUGS (20)
  1. FLUTICASONE PROPIONATE. [Concomitant]
     Active Substance: FLUTICASONE PROPIONATE
     Dosage: USE 2 SPRAYS IN EACH NOSTRIL ONCE DAILY
     Route: 045
     Dates: start: 20160926
  2. LANTUS [Concomitant]
     Active Substance: INSULIN GLARGINE
     Dosage: UNK
     Dates: start: 20160826
  3. PULMOZYME [Concomitant]
     Active Substance: DORNASE ALFA
     Dosage: 1 DOSAGE FORM, BID
     Route: 055
     Dates: start: 20080626
  4. SYMBICORT [Concomitant]
     Active Substance: BUDESONIDE\FORMOTEROL FUMARATE DIHYDRATE
     Dosage: UNK
     Route: 055
     Dates: start: 20150921
  5. VITAMIN D3 [Concomitant]
     Active Substance: CHOLECALCIFEROL
     Dosage: 1 DOSAGE FORM, BID
     Route: 048
     Dates: start: 20161128
  6. POTASSIUM CITRATE. [Concomitant]
     Active Substance: POTASSIUM CITRATE
     Dosage: UNK
     Dates: start: 20160215
  7. CREON [Concomitant]
     Active Substance: PANCRELIPASE AMYLASE\PANCRELIPASE LIPASE\PANCRELIPASE PROTEASE
     Dosage: TAKE 3 CAPSULES BY MOUTH WITH SNACKS
     Route: 048
     Dates: start: 20100625
  8. ORKAMBI [Suspect]
     Active Substance: IVACAFTOR\LUMACAFTOR
     Indication: CYSTIC FIBROSIS
     Dosage: 2 DOSAGE FORM (200/125 MG EACH), BID
     Route: 048
     Dates: start: 20150804
  9. KITABIS PAK [Concomitant]
     Active Substance: TOBRAMYCIN
     Dosage: USE 1 VIAL IN NEBULIZER TWICE DAILY FOR 28 DAYS EVERY OTHER MONTH
     Route: 055
     Dates: start: 20170227
  10. HUMALOG [Concomitant]
     Active Substance: INSULIN LISPRO
     Dosage: JECT 1 UNIT FOR EVERY 15GM OF CARBOHYDRATES INGESTED UP TO 100 UNITS PER DAY
     Route: 058
     Dates: start: 20160302
  11. ALBUTEROL SULFATE. [Concomitant]
     Active Substance: ALBUTEROL SULFATE
     Dosage: TWO TIMES A DAY AS NEEDED AND UP TOEVERY 4 HOURS AS NEEDED
     Route: 055
     Dates: start: 20080626
  12. ALL DAY ALLERGY [Concomitant]
     Active Substance: CETIRIZINE HYDROCHLORIDE
     Dosage: 1 DOSAGE FORM, QD
     Dates: start: 20151202
  13. AZITHROMYCIN ANHYDROUS. [Concomitant]
     Active Substance: AZITHROMYCIN ANHYDROUS
     Dosage: TAKE I TABLET BY MOUTH EVERY MONDAY, WEDNESDAY, AND FRIDAY
     Route: 048
  14. CALCIUM ANTACID [Concomitant]
     Active Substance: CALCIUM CARBONATE
     Dosage: 2 DOSAGE FORM, QD
     Route: 048
     Dates: start: 20080626
  15. LOSARTAN POTASSIUM. [Concomitant]
     Active Substance: LOSARTAN POTASSIUM
     Dosage: 1 DOSAGE FORM, BID
     Route: 048
     Dates: start: 20131119
  16. LANSOPRAZOLE. [Concomitant]
     Active Substance: LANSOPRAZOLE
     Dosage: 1 DOSAGE FORM, BID
     Route: 048
     Dates: start: 20080626
  17. TAMSULOSIN HCL [Concomitant]
     Active Substance: TAMSULOSIN HYDROCHLORIDE
     Dosage: UNK
     Route: 048
     Dates: start: 20151204
  18. GOLYTELY [Concomitant]
     Active Substance: POLYETHYLENE GLYCOL 3350\POTASSIUM CHLORIDE\SODIUM BICARBONATE\SODIUM CHLORIDE\SODIUM SULFATE ANHYDROUS
     Dosage: GM OML SOLUTION RECONSTITUTED DRINK 8 OUNCES EVERY 10 MINUTES UNTIL ALL TAKEN
     Route: 048
     Dates: start: 20150911
  19. LINEZOLID. [Concomitant]
     Active Substance: LINEZOLID
     Dosage: 1 DOSAGE FORM, BID
     Route: 048
     Dates: start: 20180115
  20. VANCOMYCIN HCL [Concomitant]
     Active Substance: VANCOMYCIN HYDROCHLORIDE
     Dosage: INHALE 250MG IN 4 ML STERILE WATER TWICE A DAY FOR 28 DAYS EVERY OTHER MONTH
     Route: 055
     Dates: start: 20150310

REACTIONS (1)
  - Pulmonary function test decreased [Unknown]

NARRATIVE: CASE EVENT DATE: 20180111
